FAERS Safety Report 9409018 (Version 1)
Quarter: 2013Q1

REPORT INFORMATION
  Report Type: Spontaneous
  Country: IT (occurrence: None)
  Receive Date: 20130301
  Receipt Date: 20130301
  Transmission Date: 20140127
  Serious: Yes (Hospitalization, Other)
  Sender: FDA-Public Use
  Company Number: 2013DEPIT00465

PATIENT
  Age: 15 Year
  Sex: Female

DRUGS (4)
  1. DEPOCYT [Suspect]
     Indication: METASTASES TO MENINGES
     Dosage: CYCLIC, EVERY 14 DAYS
     Route: 037
     Dates: start: 20121218, end: 20130205
  2. SOLDESAM (DEXAMETHASONE SODIUM PHOSPHATE) [Concomitant]
  3. MEPRAL (OMEPRAZOLE) [Concomitant]
  4. GARDENALE (PHENOBARBITAL) [Concomitant]

REACTIONS (13)
  - Meningitis [None]
  - Red blood cell count decreased [None]
  - Haemoglobin decreased [None]
  - Haematocrit decreased [None]
  - Platelet count decreased [None]
  - Gamma-glutamyltransferase increased [None]
  - Pyrexia [None]
  - Headache [None]
  - Nuchal rigidity [None]
  - Vomiting [None]
  - Toxicity to various agents [None]
  - CSF protein abnormal [None]
  - CSF glucose abnormal [None]
